FAERS Safety Report 23749958 (Version 1)
Quarter: 2024Q2

REPORT INFORMATION
  Report Type: Other
  Country: GB (occurrence: GB)
  Receive Date: 20240417
  Receipt Date: 20240417
  Transmission Date: 20240715
  Serious: Yes (Other)
  Sender: FDA-Public Use
  Company Number: None

PATIENT

DRUGS (12)
  1. NAPROXEN [Suspect]
     Active Substance: NAPROXEN
     Indication: Ill-defined disorder
     Dosage: UNK
     Route: 065
     Dates: start: 20230502
  2. NAPROXEN [Suspect]
     Active Substance: NAPROXEN
     Dosage: UNK (TAKE 1 TABLET TWICE A DAY FOR PAIN RELIEF - TAK.)
     Route: 065
     Dates: start: 20240311
  3. AMITRIPTYLINE HYDROCHLORIDE [Concomitant]
     Active Substance: AMITRIPTYLINE HYDROCHLORIDE
     Indication: Ill-defined disorder
     Dosage: UNK (TAKE ONE AT NIGHT - ABOUT 1 HOUR BEFORE BEDTIME)
     Route: 065
     Dates: start: 20240311
  4. ESTRADIOL [Concomitant]
     Active Substance: ESTRADIOL
     Indication: Ill-defined disorder
     Dosage: UNK (ONE DAILY)
     Route: 065
     Dates: start: 20221021
  5. FEXOFENADINE [Concomitant]
     Active Substance: FEXOFENADINE HYDROCHLORIDE
     Indication: Ill-defined disorder
     Dosage: UNK, ONE TO BE TAKEN EACH DAY
     Route: 065
     Dates: start: 20221021
  6. FLUTICASONE PROPIONATE\FORMOTEROL FUMARATE [Concomitant]
     Active Substance: FLUTICASONE PROPIONATE\FORMOTEROL FUMARATE
     Indication: Ill-defined disorder
     Dosage: UNK (TWO PUFFS TO BE INHALED TWICE A DAY)
     Route: 065
     Dates: start: 20221021
  7. CHOLECALCIFEROL [Concomitant]
     Active Substance: CHOLECALCIFEROL
     Indication: Ill-defined disorder
     Dosage: UNK, TAKE 1 DAILY. BT IN JAN 2022 PLEASE FOR VITAMIN D
     Route: 065
     Dates: start: 20221021
  8. EPINEPHRINE BITARTRATE [Concomitant]
     Active Substance: EPINEPHRINE BITARTRATE
     Indication: Ill-defined disorder
     Dosage: UNK (AS DIRECTED)
     Route: 065
     Dates: start: 20221021
  9. LANSOPRAZOLE [Concomitant]
     Active Substance: LANSOPRAZOLE
     Indication: Ill-defined disorder
     Dosage: UNK (TWO TO BE TAKEN EACH MORNING)
     Route: 065
     Dates: start: 20221021
  10. ALBUTEROL [Concomitant]
     Active Substance: ALBUTEROL
     Indication: Ill-defined disorder
     Dosage: UNK (ONE OR TWO PUFFS TO BE INHALED UP TO FOUR TIMES)
     Route: 065
     Dates: start: 20221231
  11. TERBINAFINE [Concomitant]
     Active Substance: TERBINAFINE
     Indication: Ill-defined disorder
     Dosage: UNK, TAKE ONE DAILY FOR FUNGAL NAILS (3 MONTHS FOR F...
     Route: 065
     Dates: start: 20230227, end: 20240311
  12. BECLOMETHASONE DIPROPIONATE\FORMOTEROL FUMARATE\GLYCOPYRROLATE [Concomitant]
     Active Substance: BECLOMETHASONE DIPROPIONATE\FORMOTEROL FUMARATE\GLYCOPYRROLATE
     Indication: Ill-defined disorder
     Dosage: UNK (INHALE TWO PUFFS TWICE A DAY AS DIRECTED. (PLEA)
     Route: 065
     Dates: start: 20240125, end: 20240328

REACTIONS (1)
  - Hallucination, auditory [Recovered/Resolved]

NARRATIVE: CASE EVENT DATE: 20240219
